FAERS Safety Report 11870699 (Version 2)
Quarter: 2015Q4

REPORT INFORMATION
  Report Type: Spontaneous
  Country: US (occurrence: US)
  Receive Date: 20151228
  Receipt Date: 20151230
  Transmission Date: 20160305
  Serious: No
  Sender: FDA-Public Use
  Company Number: US-009507513-1512USA005123

PATIENT

DRUGS (1)
  1. ENTEREG [Suspect]
     Active Substance: ALVIMOPAN
     Dosage: 12 MG, UNK
     Route: 048
     Dates: start: 20151208, end: 20151208

REACTIONS (1)
  - Contraindicated drug administered [Unknown]

NARRATIVE: CASE EVENT DATE: 20151208
